FAERS Safety Report 7741213-0 (Version None)
Quarter: 2011Q3

REPORT INFORMATION
  Report Type: 
  Country: None (occurrence: None)
  Receive Date: 20110909
  Receipt Date: 20110906
  Transmission Date: 20111222
  Serious: Yes (Death)
  Sender: FDA-Public Use
  Company Number: DE-BAYER-2011-083446

PATIENT
  Age: 87 Year
  Sex: Female

DRUGS (13)
  1. OXAZEPAM [Concomitant]
     Dosage: 5 MG, UNK
     Route: 048
     Dates: start: 20080108, end: 20080115
  2. INSULIN [Concomitant]
     Dosage: 42 IU, UNK
     Route: 058
     Dates: start: 20000101, end: 20080115
  3. MOLSIDOMIN [Concomitant]
     Dosage: 16 MG, UNK
     Route: 048
     Dates: start: 20020101, end: 20080115
  4. NITROSPRAY [GLYCERYL TRINITRATE] [Concomitant]
     Dosage: UNK
     Dates: start: 20080115
  5. MOXIFLOXACIN [Suspect]
     Dosage: 400 MG, UNK
     Route: 048
     Dates: start: 20080115, end: 20080115
  6. HALDOL [Suspect]
     Dosage: 1 MG, UNK
     Route: 048
     Dates: start: 20080108, end: 20080115
  7. HYDROCHLOROTHIAZID [Concomitant]
     Dosage: 12.5 MG, UNK
     Route: 048
     Dates: start: 20020101, end: 20080115
  8. ACETYLDIGOXIN [Concomitant]
     Dosage: 0.1 MG, UNK
     Dates: start: 20020101, end: 20080115
  9. FUROSEMIDE [Suspect]
     Dosage: 40 MG, UNK
     Route: 042
     Dates: start: 20080115, end: 20080115
  10. RAMIPRIL [Concomitant]
     Dosage: 5 MG, UNK
     Route: 048
     Dates: start: 20020101, end: 20080115
  11. ATENOLOL [Concomitant]
     Dosage: 75 MG, UNK
     Route: 048
     Dates: start: 20020101, end: 20080115
  12. ALLOPURINOL [Concomitant]
     Dosage: 300 MG, UNK
     Route: 048
     Dates: start: 20020101, end: 20020101
  13. MARCUMAR [Concomitant]
     Dosage: 1.5 MG, UNK
     Route: 048
     Dates: start: 20020101, end: 20080115

REACTIONS (1)
  - DEATH [None]
